FAERS Safety Report 6234606-4 (Version None)
Quarter: 2009Q2

REPORT INFORMATION
  Report Type: 
  Country: None (occurrence: None)
  Receive Date: 20090615
  Receipt Date: 20090331
  Transmission Date: 20091009
  Serious: No
  Sender: FDA-Public Use
  Company Number: DSA_33439_2009

PATIENT
  Sex: Female

DRUGS (10)
  1. XENAZINE [Suspect]
     Indication: HUNTINGTON'S CHOREA
     Dosage: 25 MG QD, 12 MG TID
     Dates: start: 20090201
  2. XENAZINE [Suspect]
     Indication: HUNTINGTON'S CHOREA
     Dosage: 25 MG QD, 12 MG TID
     Dates: start: 20090201
  3. DEPAKOTE [Concomitant]
  4. CELEXA [Concomitant]
  5. CREATININE [Concomitant]
  6. ABILIFY [Concomitant]
  7. ATIVAN [Concomitant]
  8. CRYSELLE [Concomitant]
  9. MELATONIN [Concomitant]
  10. RIBOFLAVIN TAB [Concomitant]

REACTIONS (4)
  - AKATHISIA [None]
  - CRYING [None]
  - DEPRESSION [None]
  - INSOMNIA [None]
